FAERS Safety Report 6610883-2 (Version None)
Quarter: 2010Q1

REPORT INFORMATION
  Report Type: 
  Country: None (occurrence: None)
  Receive Date: 20100302
  Receipt Date: 20100119
  Transmission Date: 20100710
  Serious: No
  Sender: FDA-Public Use
  Company Number: US-ABBOTT-10P-163-0620975-00

PATIENT
  Sex: Female
  Weight: 54.48 kg

DRUGS (1)
  1. DEPAKENE [Suspect]
     Indication: EPILEPSY
     Dates: start: 19830101

REACTIONS (5)
  - DYSGEUSIA [None]
  - FEELING ABNORMAL [None]
  - HEADACHE [None]
  - PSYCHOMOTOR HYPERACTIVITY [None]
  - RESTLESSNESS [None]
